FAERS Safety Report 8589702-3 (Version None)
Quarter: 2012Q3

REPORT INFORMATION
  Report Type: 
  Country: None (occurrence: None)
  Receive Date: 20120813
  Receipt Date: 20120809
  Transmission Date: 20120928
  Serious: Yes (Hospitalization, Other)
  Sender: FDA-Public Use
  Company Number: US-PFIZER INC-2010116908

PATIENT
  Age: 37 Year
  Sex: Female

DRUGS (20)
  1. DILANTIN [Suspect]
     Dosage: 300 MG DAILY
     Route: 048
     Dates: start: 20080818
  2. CLONIDINE [Concomitant]
     Dosage: UNK
     Dates: start: 20080818
  3. DILANTIN [Suspect]
     Dosage: 100 MG, 3X/DAY
     Route: 048
     Dates: start: 20080812
  4. ACETAMINOPHEN W/ CODEINE [Concomitant]
     Dosage: UNK
     Dates: start: 20080818
  5. SUCCINYLCHOLINE CHLORIDE [Concomitant]
     Dosage: UNK
     Dates: start: 20080811
  6. POTASSIUM CHLORIDE [Concomitant]
     Dosage: UNK
     Route: 042
     Dates: start: 20080812
  7. QUETIAPINE [Concomitant]
     Dosage: UNK
     Dates: start: 20080818, end: 20080826
  8. ASCORBIC ACID [Concomitant]
     Dosage: UNK
     Dates: start: 20080818
  9. INSULIN HUMAN [Concomitant]
     Dosage: UNK
     Dates: start: 20080811
  10. FOSPHENYTOIN [Concomitant]
     Dosage: 1000MG, UNK
     Route: 042
     Dates: start: 20080811
  11. FOLIC ACID [Concomitant]
     Dosage: UNK
     Dates: start: 20080812
  12. ESCITALOPRAM [Concomitant]
     Dosage: UNK
     Dates: start: 20080818
  13. DILANTIN [Suspect]
     Indication: CONVULSION PROPHYLAXIS
     Dosage: UNK
     Route: 048
     Dates: start: 20080811, end: 20080825
  14. UNASYN [Concomitant]
     Indication: PNEUMONIA ASPIRATION
     Dosage: UNK
     Route: 042
     Dates: start: 20080811, end: 20080817
  15. MORPHINE SULFATE [Concomitant]
     Dosage: UNK
     Dates: start: 20080812
  16. LORAZEPAM [Concomitant]
     Dosage: UNK
     Dates: start: 20080818
  17. KETOROLAC TROMETHAMINE [Concomitant]
     Dosage: UNK
     Dates: start: 20080818
  18. DALTEPARIN SODIUM [Concomitant]
     Dosage: UNK
     Dates: start: 20080818
  19. MULTI-VITAMINS [Concomitant]
     Dosage: 10 ML, UNK
     Dates: start: 20080812
  20. ESOMEPRAZOLE [Concomitant]
     Dosage: UNK
     Dates: start: 20080812

REACTIONS (1)
  - STEVENS-JOHNSON SYNDROME [None]
